FAERS Safety Report 4499727-5 (Version None)
Quarter: 2004Q4

REPORT INFORMATION
  Report Type: 
  Country: None (occurrence: None)
  Receive Date: 20041108
  Receipt Date: 20041022
  Transmission Date: 20050328
  Serious: Yes (Other)
  Sender: FDA-Public Use
  Company Number: PR-SHR-03-005414

PATIENT
  Age: 58 Year
  Sex: Female
  Weight: 70.7 kg

DRUGS (1)
  1. CLIMARA [Suspect]
     Dosage: TRANSDERMAL
     Route: 062
     Dates: start: 19990601, end: 20020101

REACTIONS (19)
  - ALOPECIA [None]
  - ANAPHYLACTIC SHOCK [None]
  - ANXIETY [None]
  - CALCIUM METABOLISM DISORDER [None]
  - DIZZINESS [None]
  - DYSPNOEA [None]
  - ERYTHEMA [None]
  - HYPERSENSITIVITY [None]
  - IMPAIRED WORK ABILITY [None]
  - JOINT SWELLING [None]
  - MENTAL DISORDER [None]
  - OEDEMA PERIPHERAL [None]
  - OSTEOARTHRITIS [None]
  - OSTEOPENIA [None]
  - RASH [None]
  - SKIN DISORDER [None]
  - SKIN IRRITATION [None]
  - THERMAL BURN [None]
  - WHITE BLOOD CELL COUNT DECREASED [None]
